FAERS Safety Report 24404877 (Version 1)
Quarter: 2024Q4

REPORT INFORMATION
  Report Type: Spontaneous
  Country: US (occurrence: None)
  Receive Date: 20241004
  Receipt Date: 20241004
  Transmission Date: 20250114
  Serious: No
  Sender: Public
  Company Number: None

PATIENT
  Age: 71 Year
  Sex: Male

DRUGS (2)
  1. TIZANIDINE HYDROCHLORIDE [Suspect]
     Active Substance: TIZANIDINE HYDROCHLORIDE
     Indication: Pain
     Dates: start: 20240603, end: 20240603
  2. METHOCARBAMOL [Suspect]
     Active Substance: METHOCARBAMOL

REACTIONS (9)
  - Product use issue [None]
  - Confusional state [None]
  - Dizziness [None]
  - Hypotension [None]
  - Dysarthria [None]
  - Hypoxia [None]
  - Vision blurred [None]
  - Dry mouth [None]
  - Product administration error [None]

NARRATIVE: CASE EVENT DATE: 20240603
